FAERS Safety Report 7496260-3 (Version None)
Quarter: 2011Q2

REPORT INFORMATION
  Report Type: 
  Country: None (occurrence: None)
  Receive Date: 20110523
  Receipt Date: 20110518
  Transmission Date: 20111010
  Serious: Yes (Death)
  Sender: FDA-Public Use
  Company Number: PHHY2011TW35142

PATIENT
  Sex: Male

DRUGS (2)
  1. SUTENT [Suspect]
  2. GLEEVEC [Suspect]
     Indication: GASTROINTESTINAL STROMAL TUMOUR
     Dosage: 800 MG, DAILY
     Route: 048
     Dates: start: 20070526

REACTIONS (6)
  - OESOPHAGEAL ULCER [None]
  - NEOPLASM MALIGNANT [None]
  - PERITONEAL DISORDER [None]
  - GASTROINTESTINAL STROMAL TUMOUR [None]
  - APHAGIA [None]
  - BLISTER [None]
